FAERS Safety Report 10031660 (Version 2)
Quarter: 2014Q1

REPORT INFORMATION
  Report Type: Spontaneous
  Country: IT (occurrence: IT)
  Receive Date: 20140324
  Receipt Date: 20140330
  Transmission Date: 20141002
  Serious: Yes (Hospitalization)
  Sender: FDA-Public Use
  Company Number: IT-TEVA-469279ISR

PATIENT
  Age: 59 Year
  Sex: Male

DRUGS (8)
  1. FLUOROURACILE TEVA [Suspect]
     Indication: COLON CANCER
     Dosage: 526.4 MILLIGRAM DAILY;
     Route: 042
     Dates: start: 20140108, end: 20140108
  2. FLUOROURACILE AHCL [Suspect]
     Indication: COLON CANCER
     Dosage: 3158 MILLIGRAM DAILY;
     Route: 042
     Dates: start: 20140108, end: 20140110
  3. ZALTRAP [Suspect]
     Indication: COLON CANCER
     Dosage: 210 MILLIGRAM DAILY; CONCENTRATE FOR SOLUTION FOR INFUSION
     Route: 042
     Dates: start: 20140108, end: 20140108
  4. IRINOTECAN HOSPIRA [Suspect]
     Indication: COLON CANCER
     Dosage: 236.9 MILLIGRAM DAILY; CONCENTRATE FOR SOLUTION FOR INFUSION
     Route: 042
     Dates: start: 20140108, end: 20140108
  5. ONDANSETRON HOSPIRA [Concomitant]
     Dosage: 8 MILLIGRAM DAILY;
     Route: 042
     Dates: start: 20140108, end: 20140108
  6. SOLDESAM [Concomitant]
     Dosage: 4 MILLIGRAM DAILY;
     Route: 042
     Dates: start: 20140108, end: 20140108
  7. RANIDIL [Concomitant]
     Dosage: 50 MILLIGRAM DAILY;
     Route: 042
     Dates: start: 20140108, end: 20140108
  8. LEVOFOLENE [Concomitant]
     Dosage: 263.2 MILLIGRAM DAILY; POWDER AND SOLVENT FOR SOLUTION FOR INJECTION
     Route: 042
     Dates: start: 20140108, end: 20140108

REACTIONS (2)
  - Abdominal pain [Recovering/Resolving]
  - Intestinal perforation [Recovering/Resolving]
